FAERS Safety Report 12783216 (Version 1)
Quarter: 2016Q3

REPORT INFORMATION
  Report Type: Report from Study
  Country: US (occurrence: US)
  Receive Date: 20160927
  Receipt Date: 20160927
  Transmission Date: 20161109
  Serious: Yes (Other)
  Sender: FDA-Public Use
  Company Number: US-BEH-2010023005

PATIENT
  Sex: Female

DRUGS (3)
  1. IVIG LYOPHILIZED [Suspect]
     Active Substance: HUMAN IMMUNOGLOBULIN G
     Indication: IMMUNODEFICIENCY COMMON VARIABLE
     Dosage: 55 GRAMS EVERY 3-4 WEEKS
     Route: 042
  2. IVIG LYOPHILIZED [Suspect]
     Active Substance: HUMAN IMMUNOGLOBULIN G
     Indication: SELECTIVE IGG SUBCLASS DEFICIENCY
  3. IVIG LYOPHILIZED [Suspect]
     Active Substance: HUMAN IMMUNOGLOBULIN G
     Indication: SELECTIVE POLYSACCHARIDE ANTIBODY DEFICIENCY

REACTIONS (4)
  - Abdominal tenderness [Unknown]
  - Chest discomfort [Unknown]
  - Anaphylactic reaction [Unknown]
  - Dyspnoea [Unknown]
